FAERS Safety Report 7581588-9 (Version None)
Quarter: 2011Q2

REPORT INFORMATION
  Report Type: 
  Country: None (occurrence: None)
  Receive Date: 20110629
  Receipt Date: 20110617
  Transmission Date: 20111010
  Serious: Yes (Other)
  Sender: FDA-Public Use
  Company Number: US-ELI_LILLY_AND_COMPANY-US201106002265

PATIENT
  Sex: Female

DRUGS (11)
  1. POTASSIUM [Concomitant]
  2. CALCIUM 600 + D [Concomitant]
     Dosage: 2 DF, QD
  3. FORTEO [Suspect]
     Indication: OSTEOPOROSIS
     Dosage: 20 UG, QD
     Route: 065
     Dates: start: 20110525
  4. OMEPRAZOLE [Concomitant]
  5. EFFEXOR [Concomitant]
  6. FORTEO [Suspect]
     Dosage: 20 UG, QD
     Route: 065
     Dates: start: 20110601
  7. FUROSEMIDE [Concomitant]
  8. ASPIRIN [Concomitant]
     Dosage: 0.81 MG, QD
  9. COZAAR [Concomitant]
  10. WARFARIN SODIUM [Concomitant]
  11. SIMVASTATIN [Concomitant]

REACTIONS (11)
  - NERVOUSNESS [None]
  - CHEST DISCOMFORT [None]
  - CARDIAC FAILURE [None]
  - FEELING ABNORMAL [None]
  - ASTHMA [None]
  - HEART VALVE INCOMPETENCE [None]
  - CHEST PAIN [None]
  - DYSPNOEA [None]
  - COUGH [None]
  - DYSPHONIA [None]
  - FEAR [None]
